FAERS Safety Report 9871914 (Version 1)
Quarter: 2014Q1

REPORT INFORMATION
  Report Type: Spontaneous
  Country: US (occurrence: US)
  Receive Date: 20140205
  Receipt Date: 20140205
  Transmission Date: 20141002
  Serious: No
  Sender: FDA-Public Use
  Company Number: US-ALLERGAN-1305380US

PATIENT
  Sex: Female

DRUGS (2)
  1. BOTOX COSMETIC [Suspect]
     Indication: SKIN WRINKLING
     Dosage: 14 UNITS, SINGLE
     Route: 030
     Dates: start: 20130328, end: 20130328
  2. BOTOX COSMETIC [Suspect]
     Dosage: 14 UNITS, SINGLE
     Route: 030
     Dates: start: 20130319, end: 20130319

REACTIONS (4)
  - Wrong technique in drug usage process [Unknown]
  - Poor quality drug administered [Unknown]
  - Drug ineffective [Unknown]
  - Therapeutic response decreased [Unknown]
